FAERS Safety Report 10418339 (Version 1)
Quarter: 2014Q3

REPORT INFORMATION
  Report Type: Spontaneous
  Country: NO (occurrence: NO)
  Receive Date: 20140829
  Receipt Date: 20140829
  Transmission Date: 20150326
  Serious: Yes (Hospitalization)
  Sender: FDA-Public Use
  Company Number: NO-ACTAVIS-2014-18782

PATIENT
  Age: 57 Year
  Sex: Male

DRUGS (3)
  1. EPIRUBICIN [Concomitant]
     Active Substance: EPIRUBICIN
     Indication: OESOPHAGEAL CARCINOMA RECURRENT
     Dosage: 105 MG, 1/ THREE WEEKS - EPIRUBICIN ADMINISTERED 20140530 AND 20140620
     Route: 042
     Dates: start: 20140530, end: 20140620
  2. OXALIPLATIN. [Suspect]
     Active Substance: OXALIPLATIN
     Indication: OESOPHAGEAL CARCINOMA RECURRENT
     Dosage: 225 MG, 1/ THREE WEEKS - OXALIPLATIN ADMINISTERED 20140530 AND 20140620
     Route: 042
     Dates: start: 20140530, end: 20140620
  3. XELODA [Concomitant]
     Active Substance: CAPECITABINE
     Indication: OESOPHAGEAL CARCINOMA RECURRENT
     Dosage: 1300 MG, BID - ADMINISTERED ON DAY 1-21 OF EOX TREATMENT
     Route: 048
     Dates: start: 20140530

REACTIONS (5)
  - Neurotoxicity [Recovered/Resolved]
  - Asthenia [Recovered/Resolved]
  - Muscular weakness [Recovered/Resolved]
  - Paraesthesia [Recovered/Resolved]
  - Dysarthria [Recovered/Resolved]

NARRATIVE: CASE EVENT DATE: 20140530
